FAERS Safety Report 14253077 (Version 1)
Quarter: 2017Q4

REPORT INFORMATION
  Report Type: Spontaneous
  Country: US (occurrence: US)
  Receive Date: 20171205
  Receipt Date: 20171205
  Transmission Date: 20180321
  Serious: Yes (Life-Threatening, Hospitalization, Other)
  Sender: FDA-Public Use
  Company Number: US-ELI_LILLY_AND_COMPANY-US201711011736

PATIENT
  Age: 0 Day
  Weight: .99 kg

DRUGS (22)
  1. BENADRYL [Suspect]
     Active Substance: DIPHENHYDRAMINE HYDROCHLORIDE
     Indication: VOMITING
     Dosage: UNK, UNKNOWN
     Route: 064
  2. ATIVAN [Suspect]
     Active Substance: LORAZEPAM
     Indication: PRODUCT USED FOR UNKNOWN INDICATION
     Dosage: UNK, UNKNOWN
     Route: 064
  3. KLONOPIN [Suspect]
     Active Substance: CLONAZEPAM
     Indication: BIPOLAR DISORDER
     Dosage: UNK, UNKNOWN
     Route: 064
  4. REGLAN [Suspect]
     Active Substance: METOCLOPRAMIDE HYDROCHLORIDE
     Indication: VOMITING
     Dosage: UNK, UNKNOWN
     Route: 064
  5. CYMBALTA [Suspect]
     Active Substance: DULOXETINE HYDROCHLORIDE
     Indication: BIPOLAR DISORDER
     Dosage: UNK, UNKNOWN
     Route: 064
  6. ZOFRAN [Suspect]
     Active Substance: ONDANSETRON HYDROCHLORIDE
     Indication: VOMITING
     Dosage: UNK, UNKNOWN
     Route: 064
  7. PHENERGAN [Suspect]
     Active Substance: PROMETHAZINE HYDROCHLORIDE
     Indication: VOMITING
     Dosage: UNK, UNKNOWN
     Route: 064
  8. MORPHINE [Suspect]
     Active Substance: MORPHINE
     Indication: MIGRAINE
     Dosage: UNK, UNKNOWN
     Route: 064
  9. ABILIFY [Suspect]
     Active Substance: ARIPIPRAZOLE
     Indication: BIPOLAR DISORDER
     Dosage: 20 MG, UNKNOWN
     Route: 064
  10. ABILIFY [Suspect]
     Active Substance: ARIPIPRAZOLE
     Indication: BIPOLAR DISORDER
     Dosage: 20 MG, UNKNOWN
     Route: 064
  11. FENTANYL. [Suspect]
     Active Substance: FENTANYL
     Indication: MIGRAINE
     Dosage: UNK, UNKNOWN
     Route: 064
  12. MORPHINE [Suspect]
     Active Substance: MORPHINE
     Indication: MIGRAINE
     Dosage: UNK, UNKNOWN
     Route: 064
  13. PHENERGAN [Suspect]
     Active Substance: PROMETHAZINE HYDROCHLORIDE
     Indication: VOMITING
     Dosage: UNK, UNKNOWN
     Route: 064
  14. REGLAN [Suspect]
     Active Substance: METOCLOPRAMIDE HYDROCHLORIDE
     Indication: VOMITING
     Dosage: UNK, UNKNOWN
     Route: 064
  15. BENADRYL [Suspect]
     Active Substance: DIPHENHYDRAMINE HYDROCHLORIDE
     Indication: VOMITING
     Dosage: UNK, UNKNOWN
     Route: 064
  16. CYMBALTA [Suspect]
     Active Substance: DULOXETINE HYDROCHLORIDE
     Indication: BIPOLAR DISORDER
     Dosage: UNK, UNKNOWN
     Route: 064
  17. ZOFRAN [Suspect]
     Active Substance: ONDANSETRON HYDROCHLORIDE
     Indication: VOMITING
     Dosage: UNK, UNKNOWN
     Route: 064
  18. KLONOPIN [Suspect]
     Active Substance: CLONAZEPAM
     Indication: BIPOLAR DISORDER
     Dosage: UNK, UNKNOWN
     Route: 064
  19. ATIVAN [Suspect]
     Active Substance: LORAZEPAM
     Indication: PRODUCT USED FOR UNKNOWN INDICATION
     Dosage: UNK, UNKNOWN
     Route: 064
  20. CLONIDINE. [Suspect]
     Active Substance: CLONIDINE
     Indication: PROPHYLAXIS
     Dosage: UNK, UNKNOWN
     Route: 064
  21. CLONIDINE. [Suspect]
     Active Substance: CLONIDINE
     Indication: PROPHYLAXIS
     Dosage: UNK, UNKNOWN
     Route: 064
  22. FENTANYL. [Suspect]
     Active Substance: FENTANYL
     Indication: MIGRAINE
     Dosage: UNK, UNKNOWN
     Route: 064

REACTIONS (11)
  - Foetal exposure during pregnancy [Unknown]
  - Low birth weight baby [Unknown]
  - Premature baby [Unknown]
  - Hypotonia neonatal [Unknown]
  - Foetal malpresentation [Unknown]
  - Bronchopulmonary dysplasia [Unknown]
  - Selective eating disorder [Unknown]
  - Cyanosis neonatal [Unknown]
  - Foetal heart rate decreased [Unknown]
  - Neonatal respiratory distress syndrome [Unknown]
  - Tachycardia foetal [Unknown]

NARRATIVE: CASE EVENT DATE: 20090529
